FAERS Safety Report 9049778 (Version 1)
Quarter: 2013Q1

REPORT INFORMATION
  Report Type: Spontaneous
  Country: US (occurrence: US)
  Receive Date: 20130205
  Receipt Date: 20130205
  Transmission Date: 20140127
  Serious: Yes (Hospitalization)
  Sender: FDA-Public Use
  Company Number: US-BAYER-2013-014411

PATIENT
  Age: 24 Year
  Sex: Female
  Weight: 82.54 kg

DRUGS (3)
  1. YAZ [Suspect]
  2. GIANVI [Suspect]
  3. PERCOCET [OXYCODONE HYDROCHLORIDE,PARACETAMOL] [Concomitant]

REACTIONS (3)
  - Deep vein thrombosis [None]
  - Pelvic venous thrombosis [None]
  - Deep vein thrombosis [None]
